FAERS Safety Report 5356304-1 (Version None)
Quarter: 2007Q2

REPORT INFORMATION
  Report Type: 
  Country: None (occurrence: None)
  Receive Date: 20070613
  Receipt Date: 20070604
  Transmission Date: 20071010
  Serious: Yes (Other)
  Sender: FDA-Public Use
  Company Number: US-PFIZER INC-2007045390

PATIENT
  Age: 56 Year
  Sex: Female

DRUGS (2)
  1. PREDNISONE TAB [Suspect]
     Indication: IMMUNOSUPPRESSION
  2. TACROLIMUS [Concomitant]

REACTIONS (1)
  - SCLERODERMA RENAL CRISIS [None]
